FAERS Safety Report 14577177 (Version 2)
Quarter: 2018Q1

REPORT INFORMATION
  Report Type: Spontaneous
  Country: US (occurrence: US)
  Receive Date: 20180227
  Receipt Date: 20180328
  Transmission Date: 20180509
  Serious: Yes (Other)
  Sender: FDA-Public Use
  Company Number: US-ASTELLAS-2018US009393

PATIENT
  Sex: Female

DRUGS (2)
  1. IMIPRAMINE [Concomitant]
     Active Substance: IMIPRAMINE
     Indication: STRESS
     Dosage: UNK UNK, UNKNOWN FREQ.
     Route: 065
  2. MYRBETRIQ [Suspect]
     Active Substance: MIRABEGRON
     Indication: HYPERTONIC BLADDER
     Dosage: 1 TABLET, AT BEDTIME
     Route: 048

REACTIONS (3)
  - Urinary retention [Not Recovered/Not Resolved]
  - Infection [Recovered/Resolved]
  - Drug ineffective [Unknown]
